FAERS Safety Report 8244389-4 (Version None)
Quarter: 2012Q1

REPORT INFORMATION
  Report Type: 
  Country: None (occurrence: None)
  Receive Date: 20120329
  Receipt Date: 20120323
  Transmission Date: 20120608
  Serious: Yes (Life-Threatening, Hospitalization, Other)
  Sender: FDA-Public Use
  Company Number: DE-PFIZER INC-2012067012

PATIENT
  Age: 76 Year
  Sex: Female

DRUGS (1)
  1. LINEZOLID [Suspect]
     Indication: ENTEROCOCCAL SEPSIS
     Dosage: 600 MG, 2X/DAY
     Route: 042
     Dates: start: 20120308

REACTIONS (1)
  - SEPSIS [None]
